FAERS Safety Report 22958044 (Version 2)
Quarter: 2023Q4

REPORT INFORMATION
  Report Type: Spontaneous
  Country: US (occurrence: US)
  Receive Date: 20230919
  Receipt Date: 20231004
  Transmission Date: 20240110
  Serious: Yes (Hospitalization, Other)
  Sender: FDA-Public Use
  Company Number: US-009507513-2308USA008665

PATIENT
  Age: 80 Year
  Sex: Male
  Weight: 89.7 kg

DRUGS (2)
  1. KEYTRUDA [Suspect]
     Active Substance: PEMBROLIZUMAB
     Indication: Bladder transitional cell carcinoma
     Dosage: UNK UNK, Q3W
     Route: 042
     Dates: start: 20230726, end: 20230726
  2. PADCEV [Suspect]
     Active Substance: ENFORTUMAB VEDOTIN-EJFV
     Indication: Transitional cell carcinoma metastatic
     Dosage: 1.25 MILLIGRAM/KILOGRAM
     Route: 042
     Dates: start: 20230726, end: 20230726

REACTIONS (10)
  - Staphylococcal bacteraemia [Unknown]
  - Urostomy complication [Unknown]
  - Hypotension [Unknown]
  - Urinary tract infection [Unknown]
  - International normalised ratio increased [Unknown]
  - Vision blurred [Unknown]
  - Hypomagnesaemia [Unknown]
  - Dizziness [Unknown]
  - Colitis [Recovering/Resolving]
  - Palliative care [Unknown]

NARRATIVE: CASE EVENT DATE: 20230701
